FAERS Safety Report 19451567 (Version 1)
Quarter: 2021Q2

REPORT INFORMATION
  Report Type: Spontaneous
  Country: US (occurrence: US)
  Receive Date: 20210623
  Receipt Date: 20210623
  Transmission Date: 20210717
  Serious: No
  Sender: FDA-Public Use
  Company Number: US-NOVITIUMPHARMA-2021USNVP00058

PATIENT
  Sex: Male

DRUGS (2)
  1. CYCLOBENZOPRINE HYDROCHLORIDE [Concomitant]
     Indication: MUSCLE RELAXANT THERAPY
  2. PREDNISONE TABLETS, USP 10 MG [Suspect]
     Active Substance: PREDNISONE
     Indication: MUSCLE SPASMS

REACTIONS (3)
  - Off label use [Unknown]
  - Blood glucose increased [Unknown]
  - Abdominal discomfort [Unknown]
